FAERS Safety Report 7981137-7 (Version None)
Quarter: 2011Q4

REPORT INFORMATION
  Report Type: 
  Country: None (occurrence: None)
  Receive Date: 20111212
  Receipt Date: 20111128
  Transmission Date: 20120403
  Serious: Yes (Death)
  Sender: FDA-Public Use
  Company Number: 2011BN000101

PATIENT
  Age: 22 Year
  Sex: Female

DRUGS (7)
  1. CYTARABINE [Concomitant]
  2. MELPHALAN HYDROCHLORIDE [Suspect]
     Indication: ACUTE MYELOID LEUKAEMIA
     Dosage: 70 MG/M**2;
  3. FLUDARABINE PHOSPHATE [Suspect]
     Indication: ACUTE MYELOID LEUKAEMIA
     Dosage: 25 MG/M**2
  4. IMMUNE GLOBULIN NOS [Concomitant]
  5. BUSULFAN [Suspect]
     Indication: ACUTE MYELOID LEUKAEMIA
     Dosage: 0.8 MG/KG;
  6. ELSPAR [Concomitant]
  7. ANTITHYMOCYTE [Concomitant]

REACTIONS (1)
  - GRAFT VERSUS HOST DISEASE [None]
